FAERS Safety Report 7446070-8 (Version None)
Quarter: 2011Q2

REPORT INFORMATION
  Report Type: 
  Country: None (occurrence: None)
  Receive Date: 20110429
  Receipt Date: 20110404
  Transmission Date: 20111010
  Serious: Yes (Other)
  Sender: FDA-Public Use
  Company Number: RU-ASTRAZENECA-2011SE12005

PATIENT
  Sex: Male

DRUGS (2)
  1. SYMBICORT [Suspect]
     Indication: CHRONIC RESPIRATORY DISEASE
     Dosage: 320/9 MCG 2 DF
     Route: 055
  2. N-ACETYLCISTEIN [Concomitant]
     Indication: CHRONIC RESPIRATORY DISEASE

REACTIONS (2)
  - GENERAL PHYSICAL CONDITION ABNORMAL [None]
  - RESPIRATORY TRACT INFECTION VIRAL [None]
